FAERS Safety Report 8530197-3 (Version None)
Quarter: 2012Q3

REPORT INFORMATION
  Report Type: 
  Country: None (occurrence: None)
  Receive Date: 20120723
  Receipt Date: 20120719
  Transmission Date: 20120928
  Serious: Yes (Hospitalization)
  Sender: FDA-Public Use
  Company Number: PHHO2012DE010564

PATIENT
  Sex: Female
  Weight: 73.9 kg

DRUGS (2)
  1. SPIRIVA [Concomitant]
     Indication: CHRONIC OBSTRUCTIVE PULMONARY DISEASE
  2. TASIGNA [Suspect]
     Indication: ACUTE LYMPHOCYTIC LEUKAEMIA
     Dosage: 300/400 MG
     Route: 048
     Dates: start: 20120531

REACTIONS (3)
  - ATRIAL FIBRILLATION [None]
  - BRONCHOPNEUMONIA [None]
  - PNEUMONITIS [None]
